FAERS Safety Report 11642876 (Version 1)
Quarter: 2015Q4

REPORT INFORMATION
  Report Type: Spontaneous
  Country: US (occurrence: US)
  Receive Date: 20151020
  Receipt Date: 20151020
  Transmission Date: 20160304
  Serious: No
  Sender: FDA-Public Use
  Company Number: US-TEVA-587460USA

PATIENT
  Age: 90 Year
  Sex: Male
  Weight: 77.18 kg

DRUGS (1)
  1. HYDROXYCARBAMIDE [Suspect]
     Active Substance: HYDROXYUREA
     Dosage: 1000 MILLIGRAM DAILY;
     Dates: start: 20150803

REACTIONS (1)
  - Alopecia [Unknown]
